FAERS Safety Report 21308317 (Version 1)
Quarter: 2022Q3

REPORT INFORMATION
  Report Type: Spontaneous
  Country: US (occurrence: None)
  Receive Date: 20220908
  Receipt Date: 20220908
  Transmission Date: 20221027
  Serious: Yes (Hospitalization)
  Sender: FDA-Public Use
  Company Number: None

PATIENT
  Age: 85 Year
  Sex: Female
  Weight: 93.8 kg

DRUGS (13)
  1. IMATINIB [Suspect]
     Active Substance: IMATINIB
     Indication: Chronic myeloid leukaemia
     Dosage: FREQUENCY : DAILY;?
     Route: 048
     Dates: start: 202112
  2. PROBIOTICS NOS [Concomitant]
     Active Substance: PROBIOTICS NOS
  3. DOCUSATE [Concomitant]
     Active Substance: DOCUSATE
  4. ELIQUIS [Concomitant]
     Active Substance: APIXABAN
  5. JANUVIA [Concomitant]
     Active Substance: SITAGLIPTIN PHOSPHATE
  6. JARDIANCE [Concomitant]
     Active Substance: EMPAGLIFLOZIN
  7. LASIX [Concomitant]
     Active Substance: FUROSEMIDE
  8. METOPROLOL [Concomitant]
     Active Substance: METOPROLOL
  9. MIRALAX [Concomitant]
     Active Substance: POLYETHYLENE GLYCOL 3350
  10. PANTOPRAZOLE [Concomitant]
     Active Substance: PANTOPRAZOLE
  11. ROSUVASTATIN [Concomitant]
     Active Substance: ROSUVASTATIN
  12. VITAMIN D3 [Concomitant]
     Active Substance: CHOLECALCIFEROL
  13. ZINC SULFATE [Concomitant]
     Active Substance: ZINC SULFATE

REACTIONS (1)
  - Gastrointestinal disorder [None]
